FAERS Safety Report 6803351-6 (Version None)
Quarter: 2010Q2

REPORT INFORMATION
  Report Type: 
  Country: None (occurrence: None)
  Receive Date: 20100628
  Receipt Date: 20100617
  Transmission Date: 20101027
  Serious: Yes (Hospitalization)
  Sender: FDA-Public Use
  Company Number: GB-ROCHE-708446

PATIENT
  Age: 80 Year
  Sex: Female

DRUGS (1)
  1. NAPROXEN [Suspect]
     Indication: OSTEOARTHRITIS
     Route: 048
     Dates: start: 20090427, end: 20100401

REACTIONS (2)
  - BILIARY COLIC [None]
  - CHOLELITHIASIS [None]
